FAERS Safety Report 4752638-X (Version None)
Quarter: 2005Q3

REPORT INFORMATION
  Report Type: 
  Country: None (occurrence: None)
  Receive Date: 20050825
  Receipt Date: 20050810
  Transmission Date: 20060218
  Serious: Yes (Other)
  Sender: FDA-Public Use
  Company Number: 200517333GDDC

PATIENT
  Age: 19 Year
  Sex: Male

DRUGS (7)
  1. GLIBENCLAMIDE [Suspect]
     Dosage: ROUTE: NASOGASTRIC
     Route: 050
  2. CORTICOSTEROIDS [Concomitant]
  3. ANTIBIOTICS [Concomitant]
  4. BRONCHODILATORS [Concomitant]
  5. ISOFLURANE [Concomitant]
  6. NOREPINEPHRINE [Concomitant]
  7. INSULIN [Concomitant]

REACTIONS (1)
  - THERAPEUTIC RESPONSE UNEXPECTED [None]
